FAERS Safety Report 8367514-3 (Version None)
Quarter: 2012Q1

REPORT INFORMATION
  Report Type: 
  Country: None (occurrence: None)
  Receive Date: 20120323
  Receipt Date: 20111110
  Transmission Date: 20120608
  Serious: Yes (Other)
  Sender: FDA-Public Use
  Company Number: 163-21880-11072631

PATIENT
  Age: 83 Year
  Sex: Female
  Weight: 49.8957 kg

DRUGS (13)
  1. SYNTHROID [Concomitant]
  2. OXYCONTIN [Concomitant]
  3. FLUDROCORTISONE ACETATE [Concomitant]
  4. ACYCLOVIR [Concomitant]
  5. CALCIUM CITRATE (CALCIUM CITRATE) [Concomitant]
  6. LUNESTA [Concomitant]
  7. PLAVIX [Concomitant]
  8. DEXAMETHASONE [Concomitant]
  9. OXYCODONE HCL [Concomitant]
  10. REVLIMID [Suspect]
     Indication: MULTIPLE MYELOMA
     Dosage: 10 MG, DAILY 21/7, PO
     Route: 048
     Dates: start: 20110517, end: 20110524
  11. STOOL SOFTENER (DOCUSATE SODIUM) [Concomitant]
  12. MIRTAZAPINE [Concomitant]
  13. ASPIRIN [Concomitant]

REACTIONS (1)
  - HYPOTENSION [None]
